FAERS Safety Report 16586101 (Version 1)
Quarter: 2019Q3

REPORT INFORMATION
  Report Type: Not Available
  Country: US (occurrence: US)
  Receive Date: 20190717
  Receipt Date: 20190717
  Transmission Date: 20191004
  Serious: No
  Sender: FDA-Public Use
  Company Number: US-NEUROCRINE BIOSCIENCES INC.-2019NBI01867

PATIENT
  Sex: Male

DRUGS (12)
  1. INGREZZA [Suspect]
     Active Substance: VALBENAZINE
     Indication: TARDIVE DYSKINESIA
     Route: 048
     Dates: end: 201906
  2. DEPAKOTE [Concomitant]
     Active Substance: DIVALPROEX SODIUM
  3. SEROQUEL [Concomitant]
     Active Substance: QUETIAPINE FUMARATE
  4. RANITIDINE. [Concomitant]
     Active Substance: RANITIDINE
  5. TRADJENTA [Concomitant]
     Active Substance: LINAGLIPTIN
  6. GLIPIZIDE. [Concomitant]
     Active Substance: GLIPIZIDE
  7. RISPERDAL [Concomitant]
     Active Substance: RISPERIDONE
  8. SIMVASTATIN. [Concomitant]
     Active Substance: SIMVASTATIN
  9. LISINOPRIL. [Concomitant]
     Active Substance: LISINOPRIL
  10. LEVOTHYROXINE. [Concomitant]
     Active Substance: LEVOTHYROXINE
  11. ASPIRIN EC [Concomitant]
     Active Substance: ASPIRIN
  12. METFORMIN [Concomitant]
     Active Substance: METFORMIN HYDROCHLORIDE

REACTIONS (2)
  - Tardive dyskinesia [Recovering/Resolving]
  - Drooling [Recovered/Resolved]
